FAERS Safety Report 9252321 (Version 4)
Quarter: 2014Q1

REPORT INFORMATION
  Report Type: Report from Study
  Country: US (occurrence: US)
  Receive Date: 20130424
  Receipt Date: 20140123
  Transmission Date: 20141002
  Serious: Yes (Hospitalization, Other)
  Sender: FDA-Public Use
  Company Number: US-ALEXION-A201300845

PATIENT
  Age: 63 Year
  Sex: Female
  Weight: 47.2 kg

DRUGS (31)
  1. SOLIRIS [Suspect]
     Indication: HAEMOLYTIC URAEMIC SYNDROME
     Dosage: 900 MG, SINGLE
     Route: 042
     Dates: start: 20130320, end: 20130320
  2. SOLIRIS [Suspect]
     Dosage: 1200 MG, SINGLE
     Route: 042
     Dates: start: 20130327, end: 20130327
  3. SOLIRIS [Suspect]
     Dosage: 1200 MG, SINGLE
     Route: 042
     Dates: start: 20130410, end: 20130410
  4. XANAX [Concomitant]
     Dosage: 0.25 MG, TID, PRN
  5. TYLENOL [Concomitant]
     Dosage: UNK UNK, PRN
  6. NORCO 10/325 [Concomitant]
     Indication: PAIN
     Dosage: 10/325 Q4H, PRN
  7. ULTRAM [Concomitant]
     Dosage: 50 MG, PRN, EVERY 4 HOURS
  8. NEPHROVITE [Concomitant]
     Dosage: 1 DF, QD
  9. PROCARDIA XL [Concomitant]
     Dosage: 60 MG, QD, IN AM
  10. PROCARDIA XL [Concomitant]
     Dosage: 90 MG, QD
  11. PAXIL [Concomitant]
     Dosage: 10 MG, QD
  12. SENNA-S [Concomitant]
     Dosage: 2 DF, QD
  13. LISINOPRIL [Concomitant]
     Dosage: 20 MG, BID
  14. LISINOPRIL [Concomitant]
     Dosage: 5 MG, QD
  15. METOPROLOL [Concomitant]
     Dosage: 100 MG, BID
  16. OMEPRAZOLE [Concomitant]
     Dosage: 20 MG, BID
  17. OMEPRAZOLE [Concomitant]
     Dosage: 40 MG, BID
  18. URSODIOL [Concomitant]
     Dosage: 300 MG, BID
  19. MIRALAX [Concomitant]
     Dosage: 17 G, QD
  20. AMITRIPTYLINE [Concomitant]
     Dosage: 10 MG, QD, AT HS
  21. LIPITOR [Concomitant]
     Dosage: 10 MG, QD, AT HS
  22. NIFEDIPINE [Concomitant]
     Dosage: 30 MG, QD, AT HS
  23. LOVENOX [Concomitant]
     Indication: EMBOLISM
     Dosage: 60 MG, QD
     Route: 058
  24. KLONOPIN [Concomitant]
     Dosage: 0.25 MG, BID
  25. CATAPRES-TTS-2 [Concomitant]
     Dosage: 0.1 MG, TID
     Route: 062
  26. ELAVIL [Concomitant]
     Dosage: 10 MG, QD
  27. TUMS [Concomitant]
     Dosage: 500 MG, TID
  28. NITROGLYCERIN [Concomitant]
     Indication: CHEST PAIN
     Dosage: 0.4 MG, PRN EVERY 5 MIN
     Route: 060
  29. ACTIGALL [Concomitant]
     Dosage: 300 MG, BID
  30. HYDRALAZINE [Concomitant]
     Dosage: 50 MG, TID
  31. VANCOMYCIN [Concomitant]
     Dosage: 125 MG, QID FOR 9 DAYS

REACTIONS (11)
  - Acute myocardial infarction [Recovered/Resolved]
  - Malignant hypertension [Recovered/Resolved]
  - Thrombocytopenia [Recovered/Resolved]
  - Drug ineffective [Unknown]
  - Malaise [Recovered/Resolved]
  - Fall [Unknown]
  - Cachexia [Unknown]
  - Fistula [Unknown]
  - Asthenia [Unknown]
  - Depression [Unknown]
  - Local swelling [Unknown]
